FAERS Safety Report 10092256 (Version 1)
Quarter: 2014Q2

REPORT INFORMATION
  Report Type: Spontaneous
  Country: US (occurrence: US)
  Receive Date: 20140421
  Receipt Date: 20140421
  Transmission Date: 20141212
  Serious: No
  Sender: FDA-Public Use
  Company Number: US-SANOFI-AVENTIS-2013SA038074

PATIENT
  Age: 63 Year
  Sex: Male

DRUGS (3)
  1. ALLEGRA [Suspect]
     Indication: HYPERSENSITIVITY
     Route: 048
     Dates: start: 20130409
  2. NASONEX [Suspect]
  3. ANTIBIOTICS [Suspect]

REACTIONS (3)
  - Rhinorrhoea [Not Recovered/Not Resolved]
  - Rhinorrhoea [Not Recovered/Not Resolved]
  - Oral pain [Not Recovered/Not Resolved]
